FAERS Safety Report 8072016-8 (Version None)
Quarter: 2012Q1

REPORT INFORMATION
  Report Type: 
  Country: None (occurrence: None)
  Receive Date: 20120124
  Receipt Date: 20120124
  Transmission Date: 20120608
  Serious: Yes (Hospitalization)
  Sender: FDA-Public Use
  Company Number: None

PATIENT
  Age: 36 Year
  Sex: Male
  Weight: 89.2679 kg

DRUGS (10)
  1. TRIMETHOPRIM + SULFAMETHOXAZOLE [Concomitant]
  2. ONDANSETRON HCL [Concomitant]
  3. LEVETIRACETAM [Concomitant]
  4. FISH OIL [Concomitant]
  5. TURMERIC [Concomitant]
  6. LORAZEPAM [Concomitant]
  7. TEMOZOLOMIDE [Suspect]
     Indication: GLIOBLASTOMA
     Dosage: 405 MG PO QD
     Dates: start: 20110706
  8. CALCIUM + D [Concomitant]
  9. COLACE [Concomitant]
  10. DEXAMETHASONE [Concomitant]

REACTIONS (2)
  - COMPLEX PARTIAL SEIZURES [None]
  - APHASIA [None]
